FAERS Safety Report 5085401-3 (Version None)
Quarter: 2006Q3

REPORT INFORMATION
  Report Type: 
  Country: None (occurrence: None)
  Receive Date: 20060822
  Receipt Date: 20060809
  Transmission Date: 20061208
  Serious: Yes (Hospitalization, Other)
  Sender: FDA-Public Use
  Company Number: JP-BRISTOL-MYERS SQUIBB COMPANY-13477856

PATIENT
  Age: 31 Year
  Sex: Male

DRUGS (7)
  1. EFAVIRENZ [Suspect]
     Indication: HIV INFECTION
     Route: 048
     Dates: start: 20030114, end: 20040601
  2. REYATAZ [Suspect]
     Dates: start: 20040601
  3. RETROVIR [Suspect]
     Indication: HIV INFECTION
     Route: 048
     Dates: start: 19940417, end: 20040601
  4. EPIVIR [Suspect]
     Indication: HIV INFECTION
     Route: 048
     Dates: start: 19981028, end: 20040601
  5. VIREAD [Suspect]
     Dates: start: 20040601, end: 20050101
  6. ABACAVIR [Suspect]
     Dates: start: 20040601
  7. NORVIR [Suspect]
     Dates: start: 20040601

REACTIONS (5)
  - DIABETES MELLITUS INADEQUATE CONTROL [None]
  - DRUG RESISTANCE [None]
  - MENTAL DISORDER [None]
  - NEPHRITIC SYNDROME [None]
  - RENAL IMPAIRMENT [None]
